FAERS Safety Report 12364441 (Version 6)
Quarter: 2016Q3

REPORT INFORMATION
  Report Type: Spontaneous
  Country: US (occurrence: US)
  Receive Date: 20160512
  Receipt Date: 20160817
  Transmission Date: 20161109
  Serious: Yes (Hospitalization, Other)
  Sender: FDA-Public Use
  Company Number: US-ACTELION-A-NJ2016-135868

PATIENT
  Age: 66 Year
  Sex: Female

DRUGS (3)
  1. WARFARIN [Concomitant]
     Active Substance: WARFARIN
  2. TRACLEER [Suspect]
     Active Substance: BOSENTAN
     Indication: PULMONARY ARTERIAL HYPERTENSION
     Route: 048
  3. VELETRI [Suspect]
     Active Substance: EPOPROSTENOL
     Indication: PULMONARY ARTERIAL HYPERTENSION
     Dosage: 61 NG/KG, PER MIN
     Route: 042
     Dates: start: 20110609

REACTIONS (5)
  - Breast cellulitis [Unknown]
  - Fatigue [Unknown]
  - Skin disorder [Unknown]
  - Hip fracture [Unknown]
  - Epistaxis [Unknown]

NARRATIVE: CASE EVENT DATE: 201602
